FAERS Safety Report 9593358 (Version 8)
Quarter: 2015Q2

REPORT INFORMATION
  Report Type: Report from Study
  Country: US (occurrence: US)
  Receive Date: 20131004
  Receipt Date: 20150619
  Transmission Date: 20150821
  Serious: Yes (Hospitalization, Other)
  Sender: FDA-Public Use
  Company Number: US-ALEXION-A201301816

PATIENT

DRUGS (1)
  1. SOLIRIS [Suspect]
     Active Substance: ECULIZUMAB
     Indication: PAROXYSMAL NOCTURNAL HAEMOGLOBINURIA
     Dosage: 900 MG, Q2W
     Route: 042
     Dates: start: 20130725

REACTIONS (28)
  - Musculoskeletal stiffness [Unknown]
  - Bronchitis [Recovered/Resolved]
  - Abdominal pain [Unknown]
  - Back pain [Unknown]
  - Haemolysis [Recovered/Resolved]
  - Swelling face [Unknown]
  - Haemoglobinuria [Unknown]
  - Oedema peripheral [Unknown]
  - Myalgia [Unknown]
  - Pulmonary embolism [Unknown]
  - Arthralgia [Unknown]
  - Pulmonary congestion [Unknown]
  - Vision blurred [Unknown]
  - Haemoglobin abnormal [Unknown]
  - Dyspnoea [Not Recovered/Not Resolved]
  - Fatigue [Not Recovered/Not Resolved]
  - Therapeutic response delayed [Unknown]
  - Face oedema [Unknown]
  - Dry eye [Unknown]
  - Malaise [Recovered/Resolved]
  - Headache [Unknown]
  - Nausea [Unknown]
  - Insomnia [Unknown]
  - Chronic obstructive pulmonary disease [Unknown]
  - Asthma [Unknown]
  - Endodontic procedure [Recovered/Resolved]
  - Laboratory test abnormal [Recovering/Resolving]
  - Blood lactate dehydrogenase abnormal [Unknown]

NARRATIVE: CASE EVENT DATE: 2014
